FAERS Safety Report 22622388 (Version 1)
Quarter: 2023Q2

REPORT INFORMATION
  Report Type: Report from Study
  Country: BR (occurrence: BR)
  Receive Date: 20230620
  Receipt Date: 20230620
  Transmission Date: 20230722
  Serious: Yes (Other)
  Sender: FDA-Public Use
  Company Number: BR-CELLTRION INC.-2023BR006943

PATIENT

DRUGS (3)
  1. INFLIXIMAB [Suspect]
     Active Substance: INFLIXIMAB
     Indication: Rheumatoid arthritis
     Dosage: 3 AMPOULES EVERY MONTH
     Route: 042
     Dates: start: 20221122
  2. LOSARTAN [Concomitant]
     Active Substance: LOSARTAN
     Indication: Hypertension
     Dosage: 2 PILLS A DAY (START: 3 YEARS AGO)
     Route: 048
  3. ROSUVASTATIN [Concomitant]
     Active Substance: ROSUVASTATIN
     Indication: Hypercholesterolaemia
     Dosage: 1 PILL A DAY (START: 3 YEARS AGO)
     Route: 048

REACTIONS (20)
  - Arthritis [Unknown]
  - Joint swelling [Unknown]
  - Malaise [Unknown]
  - Somnolence [Unknown]
  - Pain in extremity [Unknown]
  - Pain in extremity [Unknown]
  - Peripheral swelling [Unknown]
  - Insomnia [Unknown]
  - Malaise [Recovered/Resolved]
  - Dyspnoea [Unknown]
  - Somnolence [Unknown]
  - Malaise [Unknown]
  - Inflammation [Unknown]
  - Malaise [Unknown]
  - Back pain [Unknown]
  - Cough [Unknown]
  - Therapy interrupted [Unknown]
  - Product prescribing issue [Unknown]
  - Intentional product use issue [Unknown]
  - Intentional dose omission [Unknown]

NARRATIVE: CASE EVENT DATE: 20221122
